FAERS Safety Report 4284472-1 (Version None)
Quarter: 2004Q1

REPORT INFORMATION
  Report Type: 
  Country: None (occurrence: None)
  Receive Date: 20040130
  Receipt Date: 20040123
  Transmission Date: 20041129
  Serious: No
  Sender: FDA-Public Use
  Company Number: 200311381BVD

PATIENT
  Age: 65 Year
  Weight: 85 kg

DRUGS (4)
  1. AVELOX [Suspect]
     Indication: FEBRILE NEUTROPENIA
     Dosage: 400 MG, TOTAL DAILY, ORAL
     Route: 048
     Dates: start: 20030314, end: 20030319
  2. MERONEM [Concomitant]
  3. AMPHOTERICIN B [Concomitant]
  4. NEUPOGEN [Concomitant]

REACTIONS (1)
  - FEBRILE NEUTROPENIA [None]
